FAERS Safety Report 15480784 (Version 3)
Quarter: 2018Q4

REPORT INFORMATION
  Report Type: Report from Study
  Country: DE (occurrence: DE)
  Receive Date: 20181010
  Receipt Date: 20181205
  Transmission Date: 20190205
  Serious: Yes (Other)
  Sender: FDA-Public Use
  Company Number: PHHY2017DE143808

PATIENT
  Sex: Male
  Weight: 75 kg

DRUGS (21)
  1. COSENTYX [Suspect]
     Active Substance: SECUKINUMAB
     Dosage: 150 MG, PER ADMINISTRATION
     Route: 065
     Dates: start: 20160704
  2. COSENTYX [Suspect]
     Active Substance: SECUKINUMAB
     Dosage: 150 MG, PER ADMINISTRATION
     Route: 065
     Dates: start: 20160905
  3. COSENTYX [Suspect]
     Active Substance: SECUKINUMAB
     Dosage: 150 MG, PER ADMINISTRATION
     Route: 065
     Dates: start: 20170405
  4. COSENTYX [Suspect]
     Active Substance: SECUKINUMAB
     Dosage: 150 MG, PER ADMINISTRATION
     Route: 065
     Dates: start: 20161105
  5. COSENTYX [Suspect]
     Active Substance: SECUKINUMAB
     Dosage: 150 MG, PER ADMINISTRATION
     Route: 065
     Dates: start: 20170505
  6. COSENTYX [Suspect]
     Active Substance: SECUKINUMAB
     Dosage: 150 MG, PER ADMINISTRATION
     Route: 065
     Dates: start: 20160620
  7. COSENTYX [Suspect]
     Active Substance: SECUKINUMAB
     Dosage: 150 MG, PER ADMINISTRATION
     Route: 065
     Dates: start: 20161005
  8. COSENTYX [Suspect]
     Active Substance: SECUKINUMAB
     Dosage: 150 MG, PER ADMINISTRATION
     Route: 065
     Dates: start: 20170906
  9. COSENTYX [Suspect]
     Active Substance: SECUKINUMAB
     Indication: ANKYLOSING SPONDYLITIS
     Dosage: 150 MG, PER ADMINISTRATION
     Route: 065
     Dates: start: 20160606
  10. COSENTYX [Suspect]
     Active Substance: SECUKINUMAB
     Dosage: 150 MG, PER ADMINISTRATION
     Route: 065
     Dates: start: 20161205
  11. COSENTYX [Suspect]
     Active Substance: SECUKINUMAB
     Dosage: 150 MG, PER ADMINISTRATION
     Route: 065
     Dates: start: 20170105
  12. COSENTYX [Suspect]
     Active Substance: SECUKINUMAB
     Dosage: 150 MG, PER ADMINISTRATION
     Route: 065
     Dates: start: 20170706
  13. COSENTYX [Suspect]
     Active Substance: SECUKINUMAB
     Dosage: 150 MG, PER ADMINISTRATION
     Route: 065
     Dates: start: 20160613
  14. COSENTYX [Suspect]
     Active Substance: SECUKINUMAB
     Dosage: 150 MG, PER ADMINISTRATION
     Route: 065
     Dates: start: 20160627
  15. COSENTYX [Suspect]
     Active Substance: SECUKINUMAB
     Dosage: 150 MG, PER ADMINISTRATION
     Route: 065
     Dates: start: 20160805
  16. COSENTYX [Suspect]
     Active Substance: SECUKINUMAB
     Dosage: 150 MG, PER ADMINISTRATION
     Route: 065
     Dates: start: 20170806
  17. COSENTYX [Suspect]
     Active Substance: SECUKINUMAB
     Dosage: 150 MG, PER ADMINISTRATION
     Route: 065
     Dates: start: 20170205
  18. COSENTYX [Suspect]
     Active Substance: SECUKINUMAB
     Dosage: 150 MG, PER ADMINISTRATION
     Route: 065
     Dates: start: 20170606
  19. BOOSTRIX [Concomitant]
     Active Substance: TETANUS TOXOID, REDUCED DIPHTHERIA TOXOID AND ACELLULAR PERTUSSIS VACCINE, ADSORBED ANTIGENS
     Indication: IMMUNISATION
     Dosage: 150 MG, QMO
     Route: 030
     Dates: start: 20170223, end: 20170223
  20. COSENTYX [Suspect]
     Active Substance: SECUKINUMAB
     Dosage: 150 MG, PER ADMINISTRATION
     Route: 065
     Dates: start: 20170305
  21. IBUPROFEN. [Concomitant]
     Active Substance: IBUPROFEN
     Indication: ANKYLOSING SPONDYLITIS
     Dosage: 800 MG, PRN
     Route: 048
     Dates: start: 20160225

REACTIONS (1)
  - Campylobacter gastroenteritis [Recovered/Resolved]

NARRATIVE: CASE EVENT DATE: 20170805
